FAERS Safety Report 9503574 (Version 2)
Quarter: 2013Q3

REPORT INFORMATION
  Report Type: Spontaneous
  Country: IT (occurrence: IT)
  Receive Date: 20130906
  Receipt Date: 20130925
  Transmission Date: 20140515
  Serious: Yes (Other)
  Sender: FDA-Public Use
  Company Number: IT-ELI_LILLY_AND_COMPANY-IT201308008494

PATIENT
  Age: 58 Year
  Sex: Male
  Weight: 68 kg

DRUGS (8)
  1. ALIMTA [Suspect]
     Indication: LUNG ADENOCARCINOMA
     Dosage: 682.5 MG, CYCLICAL
     Route: 042
     Dates: start: 20130103, end: 201305
  2. CISPLATIN [Suspect]
     Indication: LUNG ADENOCARCINOMA
     Dosage: 102.4 MG, CYCLICAL
     Route: 042
     Dates: start: 20130103, end: 201305
  3. FOLIC ACID [Concomitant]
  4. VITAMIN B12 [Concomitant]
  5. SOLDESAM [Concomitant]
     Dosage: 8 MG, UNKNOWN
     Route: 042
     Dates: start: 20130103, end: 20130124
  6. ONDANSETRON [Concomitant]
     Indication: PROPHYLAXIS OF NAUSEA AND VOMITING
     Dosage: 8 MG, UNKNOWN
     Route: 042
     Dates: start: 20130103, end: 20130124
  7. RANIDIL [Concomitant]
     Dosage: 50 MG, UNKNOWN
     Route: 042
     Dates: start: 20130103, end: 20130124
  8. LASIX [Concomitant]
     Dosage: 20 MG, UNKNOWN
     Route: 042
     Dates: start: 20130103, end: 20130124

REACTIONS (5)
  - Pyrexia [Recovering/Resolving]
  - Asthenia [Recovering/Resolving]
  - Oedema peripheral [Recovering/Resolving]
  - Back pain [Recovering/Resolving]
  - Nail disorder [Recovering/Resolving]
